FAERS Safety Report 9354225 (Version 2)
Quarter: 2013Q2

REPORT INFORMATION
  Report Type: Report from Study
  Country: US (occurrence: US)
  Receive Date: 20130618
  Receipt Date: 20130627
  Transmission Date: 20140414
  Serious: Yes (Other)
  Sender: FDA-Public Use
  Company Number: US-PURDUE-USA-2013-0103424

PATIENT
  Age: 63 Year
  Sex: Female

DRUGS (4)
  1. OXYCONTIN (NDA 22-272) [Suspect]
     Indication: PAIN
     Dosage: 80 MG, TID
     Dates: start: 2013
  2. OXYCONTIN (NDA 22-272) [Suspect]
     Dosage: 40 MG, UNK
     Route: 048
     Dates: start: 201301
  3. DECADRON                           /00016001/ [Concomitant]
     Dosage: 8 MG, MONTHLY
     Route: 042
     Dates: start: 201301, end: 201304
  4. LORTAB                             /00607101/ [Concomitant]
     Indication: BREAKTHROUGH PAIN

REACTIONS (4)
  - Lung neoplasm malignant [Not Recovered/Not Resolved]
  - Breakthrough pain [Not Recovered/Not Resolved]
  - Arthritis [Not Recovered/Not Resolved]
  - Nervousness [Not Recovered/Not Resolved]
